FAERS Safety Report 5441684-9 (Version None)
Quarter: 2007Q3

REPORT INFORMATION
  Report Type: 
  Country: None (occurrence: None)
  Receive Date: 20070904
  Receipt Date: 20070822
  Transmission Date: 20080115
  Serious: Yes (Life-Threatening, Other)
  Sender: FDA-Public Use
  Company Number: US-BAYER-200712944BWH

PATIENT
  Age: 54 Year
  Sex: Female

DRUGS (9)
  1. TRASYLOL [Suspect]
     Indication: HEART TRANSPLANT
     Dosage: UNIT DOSE: 5000000 KIU
     Route: 042
  2. LORAZEPAM [Concomitant]
  3. TAMOXIFEN CITRATE [Concomitant]
  4. DIGOXIN [Concomitant]
  5. FUROSEMIDE [Concomitant]
  6. HEPARIN [Concomitant]
  7. DOPAMINE HCL [Concomitant]
  8. DOBUTAMINE HCL [Concomitant]
  9. VITAMIN CAP [Concomitant]

REACTIONS (5)
  - BLOOD CREATININE INCREASED [None]
  - CARDIAC ARREST [None]
  - RENAL FAILURE ACUTE [None]
  - SPLENIC ARTERY ANEURYSM [None]
  - TRANSPLANT REJECTION [None]
